FAERS Safety Report 8265105 (Version 12)
Quarter: 2014Q1

REPORT INFORMATION
  Report Type: Report from Study
  Country: CA (occurrence: CA)
  Receive Date: 20111128
  Receipt Date: 20140303
  Transmission Date: 20141002
  Serious: Yes (Other)
  Sender: FDA-Public Use
  Company Number: PHHY2011CA30038

PATIENT
  Age: 74 Year
  Sex: Female

DRUGS (3)
  1. SANDOSTATIN LAR [Suspect]
     Indication: METASTATIC CARCINOID TUMOUR
     Dosage: 20 MG, EVERY 4 WEEKS
     Route: 030
     Dates: start: 20101018
  2. RANITIDINE [Concomitant]
     Dosage: 150 MG, BID
  3. LYRICA [Concomitant]
     Indication: RESTLESS LEGS SYNDROME
     Dosage: 50 MG, QHS

REACTIONS (18)
  - Respiratory tract infection [Unknown]
  - Influenza [Unknown]
  - Nasopharyngitis [Recovering/Resolving]
  - Wheezing [Unknown]
  - Malignant neoplasm progression [Unknown]
  - Metastases to liver [Unknown]
  - Cancer in remission [Unknown]
  - Muscle spasms [Unknown]
  - Sleep disorder [Unknown]
  - Blood pressure systolic increased [Unknown]
  - Blood count abnormal [Unknown]
  - Weight decreased [Unknown]
  - Haemoglobin decreased [Unknown]
  - Blood pressure increased [Unknown]
  - Flatulence [Recovering/Resolving]
  - Vomiting [Unknown]
  - Diarrhoea [Unknown]
  - Fatigue [Unknown]
